FAERS Safety Report 16637680 (Version 1)
Quarter: 2019Q3

REPORT INFORMATION
  Report Type: Spontaneous
  Country: US (occurrence: US)
  Receive Date: 20190726
  Receipt Date: 20190726
  Transmission Date: 20191004
  Serious: Yes (Disabling)
  Sender: FDA-Public Use
  Company Number: None

PATIENT
  Age: 63 Year
  Sex: Male
  Weight: 94.5 kg

DRUGS (7)
  1. METROPAL [Concomitant]
     Active Substance: METOPROLOL
  2. VITAMIN C [Concomitant]
     Active Substance: ASCORBIC ACID
  3. REPATHA [Suspect]
     Active Substance: EVOLOCUMAB
     Indication: HIGH DENSITY LIPOPROTEIN INCREASED
     Dates: start: 20190502, end: 20190722
  4. ADULT ASPIRIN [Concomitant]
  5. MOTRIN [Concomitant]
     Active Substance: IBUPROFEN
  6. CQ10 [Concomitant]
     Active Substance: UBIDECARENONE
  7. MAGNESIUM [Concomitant]
     Active Substance: MAGNESIUM

REACTIONS (2)
  - Myocardial infarction [None]
  - Pain [None]

NARRATIVE: CASE EVENT DATE: 20190513
